FAERS Safety Report 6201293-0 (Version None)
Quarter: 2009Q2

REPORT INFORMATION
  Report Type: 
  Country: None (occurrence: None)
  Receive Date: 20090519
  Receipt Date: 20090504
  Transmission Date: 20091009
  Serious: Yes (Hospitalization)
  Sender: FDA-Public Use
  Company Number: 2009S1008043

PATIENT
  Age: 75 Year
  Sex: Female

DRUGS (10)
  1. SPIRONOLACTONE [Suspect]
     Indication: RENAL IMPAIRMENT
     Dosage: (25 MG) 25 MG;DAILY; ORAL
     Route: 048
  2. FALITHROM (PHENPROCOUMON) [Suspect]
     Indication: ATRIAL FIBRILLATION
     Dosage: AS NEEDED; ORAL
     Route: 048
     Dates: end: 20081119
  3. RAMIPRIL [Concomitant]
  4. ALLOPURINOL [Concomitant]
  5. DIGITOXIN [Concomitant]
  6. FUROSEMIDE [Concomitant]
  7. CARMEN [Concomitant]
  8. METOPROLOL SUCCINATE [Concomitant]
  9. INSULIN ACTRAPID HUMAN [Concomitant]
  10. LOCOL [Concomitant]

REACTIONS (3)
  - DRUG INTERACTION [None]
  - GASTROINTESTINAL HAEMORRHAGE [None]
  - HAEMATOMA [None]
